FAERS Safety Report 9825430 (Version 1)
Quarter: 2013Q4

REPORT INFORMATION
  Report Type: Spontaneous
  Country: US (occurrence: None)
  Receive Date: 20131028
  Receipt Date: 20131028
  Transmission Date: 20140711
  Serious: Yes (Other)
  Sender: FDA-Public Use
  Company Number: 2013US002482

PATIENT
  Age: 45 Year
  Sex: Female
  Weight: 52 kg

DRUGS (1)
  1. ICLUSIG [Suspect]
     Indication: CHRONIC MYELOID LEUKAEMIA
     Route: 048
     Dates: start: 20130905

REACTIONS (5)
  - Eyelid oedema [None]
  - Somnolence [None]
  - Oedema peripheral [None]
  - Cough [None]
  - Fatigue [None]
